FAERS Safety Report 8251815-3 (Version None)
Quarter: 2012Q1

REPORT INFORMATION
  Report Type: 
  Country: None (occurrence: None)
  Receive Date: 20120321
  Receipt Date: 20101006
  Transmission Date: 20120608
  Serious: Yes (Other)
  Sender: FDA-Public Use
  Company Number: PHHY2010US68060

PATIENT

DRUGS (3)
  1. VALTURNA [Suspect]
     Dosage: 300/ 320, ORAL
     Route: 048
  2. LISINOPRIL [Suspect]
  3. LABETALOL HCL [Suspect]

REACTIONS (2)
  - DRUG INEFFECTIVE [None]
  - HYPERTENSION [None]
